FAERS Safety Report 22939349 (Version 2)
Quarter: 2023Q4

REPORT INFORMATION
  Report Type: Spontaneous
  Country: US (occurrence: US)
  Receive Date: 20230913
  Receipt Date: 20231206
  Transmission Date: 20240109
  Serious: No
  Sender: FDA-Public Use
  Company Number: US-Amarin Pharma  Inc-2023AMR000371

PATIENT
  Age: 61 Year
  Sex: Male

DRUGS (3)
  1. VASCEPA [Suspect]
     Active Substance: ICOSAPENT ETHYL
     Indication: Blood triglycerides increased
     Route: 048
  2. VALSARTAN [Concomitant]
     Active Substance: VALSARTAN
  3. ATORVASTATIN [Concomitant]
     Active Substance: ATORVASTATIN
     Indication: Product used for unknown indication

REACTIONS (5)
  - Poor quality product administered [Unknown]
  - Wrong technique in product usage process [Unknown]
  - Product physical issue [Unknown]
  - Product taste abnormal [Unknown]
  - Product container issue [Unknown]
